FAERS Safety Report 5008413-4 (Version None)
Quarter: 2006Q1

REPORT INFORMATION
  Report Type: 
  Country: None (occurrence: None)
  Receive Date: 20060331
  Receipt Date: 20060104
  Transmission Date: 20060701
  Serious: Yes (Hospitalization)
  Sender: FDA-Public Use
  Company Number: US163650

PATIENT
  Age: 74 Year
  Sex: Male

DRUGS (3)
  1. NEULASTA [Suspect]
     Indication: CHEMOTHERAPY
     Dosage: 6 MG, SC
     Route: 058
     Dates: start: 20051224
  2. GEMCITABINE [Concomitant]
  3. DOCETAXEM [Concomitant]

REACTIONS (6)
  - ANAPHYLACTIC REACTION [None]
  - ASTHENIA [None]
  - EYE IRRITATION [None]
  - PARAESTHESIA [None]
  - PRURITUS [None]
  - RASH [None]
